FAERS Safety Report 8458104-2 (Version None)
Quarter: 2012Q2

REPORT INFORMATION
  Report Type: 
  Country: None (occurrence: None)
  Receive Date: 20120622
  Receipt Date: 20120612
  Transmission Date: 20120825
  Serious: Yes (Other)
  Sender: FDA-Public Use
  Company Number: CA-JNJFOC-20120607089

PATIENT
  Sex: Female
  Weight: 59 kg

DRUGS (3)
  1. IMURAN [Concomitant]
  2. PREDNISONE TAB [Concomitant]
  3. REMICADE [Suspect]
     Indication: COLITIS ULCERATIVE
     Route: 042
     Dates: start: 20110205, end: 20120612

REACTIONS (1)
  - BREAST CANCER [None]
